FAERS Safety Report 7355865-0 (Version None)
Quarter: 2011Q1

REPORT INFORMATION
  Report Type: 
  Country: None (occurrence: None)
  Receive Date: 20110316
  Receipt Date: 20110307
  Transmission Date: 20110831
  Serious: Yes (Hospitalization, Other)
  Sender: FDA-Public Use
  Company Number: US-AMGEN-USASP2011012702

PATIENT
  Age: 65 Year
  Sex: Female

DRUGS (1)
  1. ENBREL [Suspect]
     Indication: RHEUMATOID ARTHRITIS
     Dosage: 50 MG, 2 TIMES/WK
     Dates: start: 20031031, end: 20101101

REACTIONS (9)
  - RHINITIS [None]
  - ERYTHEMA [None]
  - TRICUSPID VALVE DISEASE [None]
  - INJECTION SITE PAIN [None]
  - AORTIC ANEURYSM [None]
  - CARDIAC MURMUR [None]
  - OEDEMA PERIPHERAL [None]
  - PLEURITIC PAIN [None]
  - CHEST PAIN [None]
